FAERS Safety Report 6011399-7 (Version None)
Quarter: 2008Q4

REPORT INFORMATION
  Report Type: 
  Country: None (occurrence: None)
  Receive Date: 20081218
  Receipt Date: 19940128
  Transmission Date: 20090506
  Serious: Yes (Death, Other)
  Sender: FDA-Public Use
  Company Number: FR-ROCHE-101884

PATIENT
  Sex: Male
  Weight: 50 kg

DRUGS (6)
  1. HIVID [Suspect]
     Route: 048
     Dates: start: 19930625, end: 19931119
  2. ETHAMBUTOL HYDROCHLORIDE [Concomitant]
     Indication: ATYPICAL MYCOBACTERIAL INFECTION
     Route: 048
     Dates: start: 19930901, end: 19931110
  3. RIFADIN [Concomitant]
     Route: 048
     Dates: start: 19930901, end: 19940101
  4. CYMEVAN IV [Concomitant]
     Route: 042
     Dates: start: 19930101, end: 19940101
  5. BACTRIM [Concomitant]
     Route: 048
     Dates: start: 19920101
  6. ONCOVIN [Concomitant]
     Indication: DRUG USE FOR UNKNOWN INDICATION
     Route: 042
     Dates: start: 19930801, end: 19931201

REACTIONS (3)
  - DISEASE PROGRESSION [None]
  - NEUROPATHY PERIPHERAL [None]
  - OPTIC NEURITIS [None]
